FAERS Safety Report 5250316-4 (Version None)
Quarter: 2007Q1

REPORT INFORMATION
  Report Type: 
  Country: None (occurrence: None)
  Receive Date: 20070228
  Receipt Date: 20060323
  Transmission Date: 20070707
  Serious: No
  Sender: FDA-Public Use
  Company Number: US-GLAXOSMITHKLINE-A0598834A

PATIENT
  Sex: Male

DRUGS (5)
  1. LAMICTAL [Suspect]
     Indication: DEPRESSION
     Dosage: 300MG PER DAY
     Route: 048
  2. PROLIXIN [Concomitant]
  3. COGENTIN [Concomitant]
  4. ALLEGRA [Concomitant]
  5. VITAMINS [Concomitant]

REACTIONS (4)
  - ERYTHEMA [None]
  - FATIGUE [None]
  - POOR QUALITY SLEEP [None]
  - PRURITUS [None]
